FAERS Safety Report 7047414-1 (Version None)
Quarter: 2010Q4

REPORT INFORMATION
  Report Type: 
  Country: None (occurrence: None)
  Receive Date: 20101015
  Receipt Date: 20101011
  Transmission Date: 20110411
  Serious: Yes (Death)
  Sender: FDA-Public Use
  Company Number: US-CELGENEUS-163-21880-10080490

PATIENT
  Sex: Male

DRUGS (6)
  1. REVLIMID [Suspect]
     Indication: MULTIPLE MYELOMA
     Route: 048
     Dates: start: 20080201, end: 20080801
  2. REVLIMID [Suspect]
     Route: 048
     Dates: start: 20090201, end: 20090501
  3. REVLIMID [Suspect]
     Route: 048
     Dates: start: 20090601
  4. REVLIMID [Suspect]
     Route: 048
     Dates: start: 20100301
  5. VELCADE [Concomitant]
     Indication: PRODUCT USED FOR UNKNOWN INDICATION
     Route: 065
     Dates: start: 20090201, end: 20091201
  6. DEXAMETHASONE [Concomitant]
     Indication: PRODUCT USED FOR UNKNOWN INDICATION
     Route: 065
     Dates: start: 20080201, end: 20080801

REACTIONS (1)
  - MULTIPLE MYELOMA [None]
